FAERS Safety Report 8762927 (Version 1)
Quarter: 2012Q4

REPORT INFORMATION
  Report Type: Spontaneous
  Country: US (occurrence: None)
  Receive Date: 20120830
  Receipt Date: 20120830
  Transmission Date: 20130627
  Serious: Yes (Other)
  Sender: FDA-Public Use
  Company Number: None

PATIENT
  Age: 18 Year
  Sex: Male
  Weight: 68.04 kg

DRUGS (2)
  1. LEXAPRO [Suspect]
     Indication: ANXIETY
     Route: 048
     Dates: start: 20110811, end: 20120620
  2. LEXAPRO [Suspect]
     Indication: DEPRESSION
     Route: 048
     Dates: start: 20110811, end: 20120620

REACTIONS (12)
  - Drug withdrawal syndrome [None]
  - Social problem [None]
  - Panic attack [None]
  - Mood swings [None]
  - Apathy [None]
  - Memory impairment [None]
  - Psychotic disorder [None]
  - Homicidal ideation [None]
  - Suicidal ideation [None]
  - Shoplifting [None]
  - Theft [None]
  - Educational problem [None]
